FAERS Safety Report 20526578 (Version 1)
Quarter: 2022Q1

REPORT INFORMATION
  Report Type: Other
  Country: AU (occurrence: None)
  Receive Date: 20220228
  Receipt Date: 20220228
  Transmission Date: 20220423
  Serious: Yes (Death)
  Sender: FDA-Public Use
  Company Number: AU-ROCHE-3035132

PATIENT
  Age: 88 Year
  Sex: Female

DRUGS (3)
  1. CLONAZEPAM [Suspect]
     Active Substance: CLONAZEPAM
     Indication: Sedation
     Dosage: ANOTHER TWO DOSES, ADMINISTERED 30 MINUTES APART
     Route: 065
     Dates: start: 20160304
  2. MIDAZOLAM [Suspect]
     Active Substance: MIDAZOLAM
     Indication: Sedation
     Route: 058
  3. MORPHINE [Suspect]
     Active Substance: MORPHINE
     Indication: Sedation
     Route: 058

REACTIONS (7)
  - Toxicity to various agents [Fatal]
  - Cheyne-Stokes respiration [Fatal]
  - Heart rate decreased [Fatal]
  - Myocardial infarction [Fatal]
  - Off label use [Fatal]
  - Intentional overdose [Fatal]
  - Off label use [Fatal]
